FAERS Safety Report 8402496-7 (Version None)
Quarter: 2012Q2

REPORT INFORMATION
  Report Type: 
  Country: None (occurrence: None)
  Receive Date: 20120601
  Receipt Date: 20120523
  Transmission Date: 20120825
  Serious: Yes (Hospitalization, Other)
  Sender: FDA-Public Use
  Company Number: JP-VERTEX PHARMACEUTICALS INC.-AE-2012-006653

PATIENT
  Age: 65 Year
  Sex: Male

DRUGS (10)
  1. TELAVIC (TELAPREVIR) [Suspect]
     Indication: HEPATITIS C
     Route: 048
     Dates: start: 20120315
  2. TELAVIC (TELAPREVIR) [Suspect]
     Route: 048
     Dates: start: 20120324, end: 20120516
  3. ACETAMINOPHEN [Concomitant]
     Route: 048
     Dates: start: 20120315
  4. PEG-INTRON [Concomitant]
     Indication: HEPATITIS C
     Route: 058
     Dates: start: 20120315, end: 20120315
  5. PEG-INTRON [Concomitant]
     Route: 058
     Dates: start: 20120419
  6. URSO 250 [Concomitant]
     Route: 048
     Dates: start: 20110308, end: 20120314
  7. PEG-INTRON [Concomitant]
     Route: 058
     Dates: start: 20120322, end: 20120418
  8. RIBAVIRIN [Concomitant]
     Indication: HEPATITIS C
     Route: 048
     Dates: start: 20120315, end: 20120323
  9. RIBAVIRIN [Concomitant]
     Route: 048
     Dates: start: 20120324, end: 20120325
  10. RIBAVIRIN [Concomitant]
     Route: 048
     Dates: start: 20120326

REACTIONS (2)
  - RASH [None]
  - NEUTROPHIL COUNT DECREASED [None]
